FAERS Safety Report 4862422-4 (Version None)
Quarter: 2005Q4

REPORT INFORMATION
  Report Type: 
  Country: None (occurrence: None)
  Receive Date: 20051221
  Receipt Date: 20051209
  Transmission Date: 20060501
  Serious: Yes (Other)
  Sender: FDA-Public Use
  Company Number: CA-BRISTOL-MYERS SQUIBB COMPANY-13219100

PATIENT
  Age: 88 Year
  Sex: Female

DRUGS (8)
  1. TEQUIN [Suspect]
     Route: 048
  2. ADALAT [Concomitant]
  3. ADVAIR DISKUS 250/50 [Concomitant]
  4. ATIVAN [Concomitant]
  5. DIAMICRON [Concomitant]
  6. DIOVAN [Concomitant]
  7. LIPITOR [Concomitant]
  8. SYNTHROID [Concomitant]

REACTIONS (1)
  - HYPOGLYCAEMIA [None]
